FAERS Safety Report 5280148-2 (Version None)
Quarter: 2007Q1

REPORT INFORMATION
  Report Type: 
  Country: None (occurrence: None)
  Receive Date: 20061215
  Receipt Date: 20060619
  Transmission Date: 20070707
  Serious: Yes (Hospitalization, Other)
  Sender: FDA-Public Use
  Company Number: HQWYE280420JUN06

PATIENT
  Age: 57 Year
  Sex: Female
  Weight: 56.75 kg

DRUGS (2)
  1. EFFEXOR XR [Suspect]
     Indication: DEPRESSION
     Dosage: 300 MG 1X PER 1 DAY, ORAL
     Route: 048
     Dates: start: 20041201
  2. UNSPECIFIED OPHTHALMIC PREPARATION (UNSPECIFIED OPHTHALMIC PREPARATION [Concomitant]

REACTIONS (1)
  - HYPERTENSION [None]
